FAERS Safety Report 10085136 (Version 2)
Quarter: 2014Q2

REPORT INFORMATION
  Report Type: Report from Study
  Country: CA (occurrence: CA)
  Receive Date: 20140417
  Receipt Date: 20140417
  Transmission Date: 20141212
  Serious: Yes (Life-Threatening, Hospitalization, Other)
  Sender: FDA-Public Use
  Company Number: CA-ABBVIE-14P-028-1210813-00

PATIENT
  Age: 49 Year
  Sex: Female
  Weight: 48.12 kg

DRUGS (4)
  1. HUMIRA [Suspect]
     Indication: CROHN^S DISEASE
     Route: 058
     Dates: start: 20130730, end: 20140306
  2. HUMIRA [Suspect]
     Route: 058
     Dates: start: 20140415
  3. METHOTREXATE [Concomitant]
     Indication: CROHN^S DISEASE
     Route: 058
     Dates: start: 201311
  4. TYLENOL WITH CODEINE [Concomitant]
     Indication: PAIN
     Dosage: 1-2 AS NEEDED
     Route: 048

REACTIONS (6)
  - Gastric perforation [Recovered/Resolved]
  - Abdominal abscess [Recovered/Resolved]
  - Intestinal perforation [Not Recovered/Not Resolved]
  - Gastrointestinal stoma complication [Unknown]
  - Abdominal pain [Unknown]
  - Pneumoperitoneum [Unknown]
